FAERS Safety Report 9198866 (Version 2)
Quarter: 2013Q2

REPORT INFORMATION
  Report Type: Spontaneous
  Country: AT (occurrence: None)
  Receive Date: 20130327
  Receipt Date: 20130415
  Transmission Date: 20140414
  Serious: Yes (Death, Hospitalization)
  Sender: FDA-Public Use
  Company Number: UTC-030288

PATIENT
  Age: 70 Year
  Sex: Male

DRUGS (3)
  1. REMODULIN (INJECTION FOR INFUSION) (TREPROSTINIL SODIUM) [Suspect]
     Indication: PULMONARY ARTERIAL HYPERTENSION
     Dosage: 72 UG/KG (0.05 UG/KG, 1 IN 1MIN), SUBCUTANEOUS
     Route: 058
  2. REMODULIN (INJECTION FOR INFUSION) (TREPROSTINIL SODIUM) [Suspect]
     Indication: ALVEOLITIS ALLERGIC
     Dosage: 72 UG/KG (0.05 UG/KG, 1 IN 1MIN), SUBCUTANEOUS
     Route: 058
  3. TRACLEER (BOSENTAN) [Concomitant]

REACTIONS (4)
  - Sepsis [None]
  - Unevaluable event [None]
  - Pneumonia [None]
  - Disease complication [None]
